FAERS Safety Report 10811561 (Version 1)
Quarter: 2015Q1

REPORT INFORMATION
  Report Type: Report from Study
  Country: US (occurrence: US)
  Receive Date: 20150217
  Receipt Date: 20150217
  Transmission Date: 20150721
  Serious: No
  Sender: FDA-Public Use
  Company Number: US-ABBVIE-14K-163-1229902-00

PATIENT
  Age: 69 Year
  Sex: Female

DRUGS (7)
  1. VSL 3 [Concomitant]
     Indication: COLITIS ULCERATIVE
     Dosage: TWO PILLS
  2. OMEPRAZOLE. [Concomitant]
     Active Substance: OMEPRAZOLE
     Indication: DYSPEPSIA
     Dosage: ONE DAILY
  3. HUMIRA [Suspect]
     Active Substance: ADALIMUMAB
     Indication: COLITIS ULCERATIVE
     Dates: start: 20140124
  4. BALSALAZIDE DISODIUM. [Concomitant]
     Active Substance: BALSALAZIDE DISODIUM
     Indication: COLITIS ULCERATIVE
  5. BIOTIN [Concomitant]
     Active Substance: BIOTIN
     Indication: HAIR DISORDER
  6. VITAMINS NOS [Concomitant]
     Active Substance: VITAMINS
     Indication: PRODUCT USED FOR UNKNOWN INDICATION
  7. CALTRATE WITH VITAMIN D [Concomitant]
     Active Substance: CALCIUM CARBONATE\VITAMIN D
     Indication: PRODUCT USED FOR UNKNOWN INDICATION

REACTIONS (3)
  - Injection site erythema [Recovered/Resolved]
  - Injection site pruritus [Recovered/Resolved]
  - Injection site irritation [Recovered/Resolved]

NARRATIVE: CASE EVENT DATE: 20140419
